FAERS Safety Report 9698008 (Version 1)
Quarter: 2013Q4

REPORT INFORMATION
  Report Type: Spontaneous
  Country: IT (occurrence: IT)
  Receive Date: 20131120
  Receipt Date: 20131120
  Transmission Date: 20140711
  Serious: No
  Sender: FDA-Public Use
  Company Number: IT-009507513-1311ITA007115

PATIENT
  Age: 14 Year
  Sex: Male

DRUGS (4)
  1. SYCREST [Suspect]
     Indication: MANIA
     Dosage: 10 MG, QD
     Route: 060
     Dates: start: 20130912, end: 20130913
  2. FLUOXETINE [Concomitant]
     Dosage: 60 MG, UNK
     Route: 048
  3. QUETIAPINE FUMARATE [Concomitant]
     Dosage: 600 MG, UNK
     Route: 048
  4. ENTUMINE [Concomitant]
     Dosage: 30 ORAL DROPS
     Route: 048

REACTIONS (4)
  - Cyanosis [Recovered/Resolved]
  - Foaming at mouth [Recovered/Resolved]
  - Retching [Recovered/Resolved]
  - Tongue discolouration [Recovered/Resolved]
